FAERS Safety Report 5897386-8 (Version None)
Quarter: 2008Q3

REPORT INFORMATION
  Report Type: 
  Country: None (occurrence: None)
  Receive Date: 20080925
  Receipt Date: 20080915
  Transmission Date: 20090109
  Serious: Yes (Other)
  Sender: FDA-Public Use
  Company Number: US-JNJFOC-20080903958

PATIENT
  Sex: Male
  Weight: 100.8 kg

DRUGS (18)
  1. LEUSTATIN [Suspect]
     Indication: WALDENSTROM'S MACROGLOBULINAEMIA
     Route: 042
  2. PROCRIT [Concomitant]
     Route: 065
  3. PROCRIT [Concomitant]
     Indication: WALDENSTROM'S MACROGLOBULINAEMIA
     Route: 065
  4. RITUXIMAB [Concomitant]
     Route: 065
  5. CYCLOPHOSPHAMIDE [Concomitant]
     Route: 065
  6. NEUPOGEN [Concomitant]
     Route: 065
  7. MULTI-VITAMINS [Concomitant]
     Route: 048
  8. TRAZODONE HCL [Concomitant]
     Route: 048
  9. ONDANSETRON [Concomitant]
     Route: 048
  10. ZOLPIDEM TARTRATE [Concomitant]
     Route: 048
  11. ESOMEPRAZOLE MAGNESIUM [Concomitant]
     Route: 048
  12. AXOTAL [Concomitant]
     Route: 048
  13. CLONAZEPAM [Concomitant]
     Route: 048
  14. SERTRALINE HYDROCHLORIDE [Concomitant]
     Route: 048
  15. DONNATAL [Concomitant]
     Route: 048
  16. TRIMETHOPRIM + SULFAMETHOXAZOLE [Concomitant]
     Route: 048
  17. LORAZEPAM [Concomitant]
     Route: 048
  18. DESIPRAMINE HCL [Concomitant]
     Route: 048

REACTIONS (3)
  - BONE MARROW FAILURE [None]
  - LYMPHOPROLIFERATIVE DISORDER [None]
  - MYELODYSPLASTIC SYNDROME [None]
